FAERS Safety Report 5247172-7 (Version None)
Quarter: 2007Q1

REPORT INFORMATION
  Report Type: 
  Country: None (occurrence: None)
  Receive Date: 20070221
  Receipt Date: 20070213
  Transmission Date: 20070707
  Serious: Yes (Hospitalization)
  Sender: FDA-Public Use
  Company Number: 237610K06USA

PATIENT
  Age: 58 Year
  Sex: Female

DRUGS (4)
  1. REBIF [Suspect]
     Dosage: 44 MCG, 3 IN 1 WEEKS, SUBCUTANEOUS
     Route: 058
     Dates: start: 20041206
  2. VERAPAMIL [Concomitant]
  3. HYDROCHLOROTHIAZIDE [Concomitant]
  4. PAXIL [Concomitant]

REACTIONS (2)
  - CHEST PAIN [None]
  - GASTROOESOPHAGEAL REFLUX DISEASE [None]
